FAERS Safety Report 6326055-5 (Version None)
Quarter: 2009Q3

REPORT INFORMATION
  Report Type: 
  Country: None (occurrence: None)
  Receive Date: 20090824
  Receipt Date: 20090817
  Transmission Date: 20100115
  Serious: Yes (Other)
  Sender: FDA-Public Use
  Company Number: GB-TEVA-206075ISR

PATIENT
  Age: 61 Year
  Sex: Female
  Weight: 67 kg

DRUGS (1)
  1. PAMIDRONATE DISODIUM [Suspect]
     Dates: start: 20090411

REACTIONS (8)
  - CREATININE RENAL CLEARANCE DECREASED [None]
  - DEPRESSED MOOD [None]
  - FATIGUE [None]
  - INFECTION [None]
  - MALIGNANT NEOPLASM PROGRESSION [None]
  - METASTASES TO BONE [None]
  - METASTASES TO LYMPH NODES [None]
  - METASTASES TO PERIPHERAL VASCULAR SYSTEM [None]
